FAERS Safety Report 23995138 (Version 1)
Quarter: 2024Q2

REPORT INFORMATION
  Report Type: Report from Study
  Country: IT (occurrence: IT)
  Receive Date: 20240620
  Receipt Date: 20240620
  Transmission Date: 20240716
  Serious: Yes (Hospitalization, Other)
  Sender: FDA-Public Use
  Company Number: IT-JNJFOC-20240636243

PATIENT
  Age: 56 Year
  Sex: Male

DRUGS (6)
  1. BORTEZOMIB [Suspect]
     Active Substance: BORTEZOMIB
     Indication: Plasma cell myeloma
     Dosage: 2.4 MILLIGRAM
     Route: 065
     Dates: start: 20200902, end: 20201216
  2. DEXAMETHASONE [Suspect]
     Active Substance: DEXAMETHASONE
     Indication: Plasma cell myeloma
     Dosage: 40 MILLIGRAM
     Route: 065
     Dates: start: 20200902, end: 20210111
  3. THALIDOMIDE [Suspect]
     Active Substance: THALIDOMIDE
     Indication: Plasma cell myeloma
     Dosage: 200 MILLIGRAM
     Route: 065
     Dates: start: 20200902, end: 20210111
  4. FILGRASTIM [Concomitant]
     Active Substance: FILGRASTIM
     Indication: Adverse event
     Dosage: UNK
     Route: 065
     Dates: start: 20210205
  5. CYCLOPHOSPHAMIDE [Concomitant]
     Active Substance: CYCLOPHOSPHAMIDE
     Indication: Adverse event
     Dosage: UNK
     Route: 065
     Dates: start: 20210205
  6. DEXAMETHASONE [Concomitant]
     Active Substance: DEXAMETHASONE
     Indication: Adverse event
     Dosage: UNK
     Route: 065
     Dates: start: 20210205

REACTIONS (1)
  - Gastrointestinal stromal tumour [Recovered/Resolved]

NARRATIVE: CASE EVENT DATE: 20210310
